FAERS Safety Report 9263975 (Version 1)
Quarter: 2013Q2

REPORT INFORMATION
  Report Type: Spontaneous
  Country: US (occurrence: US)
  Receive Date: 20130430
  Receipt Date: 20130430
  Transmission Date: 20140414
  Serious: No
  Sender: FDA-Public Use
  Company Number: US-009507513-1304USA014126

PATIENT
  Age: 22 Year
  Sex: Female
  Weight: 88.44 kg

DRUGS (1)
  1. IMPLANON [Suspect]
     Indication: CONTRACEPTION
     Dosage: UNK, FREQUENCY EVERY 3 YEARS
     Route: 059
     Dates: start: 20130124

REACTIONS (4)
  - Menstruation irregular [Unknown]
  - Menorrhagia [Unknown]
  - Abdominal pain [Unknown]
  - Uterine pain [Unknown]
